FAERS Safety Report 8398403-6 (Version None)
Quarter: 2012Q2

REPORT INFORMATION
  Report Type: 
  Country: None (occurrence: None)
  Receive Date: 20120524
  Receipt Date: 20120511
  Transmission Date: 20120825
  Serious: Yes (Hospitalization)
  Sender: FDA-Public Use
  Company Number: DSM-2012-00455

PATIENT
  Age: 62 Year
  Sex: Female

DRUGS (3)
  1. INDAPAMIDE [Concomitant]
  2. FERROUS SULFATE TAB [Suspect]
     Indication: IRON DEFICIENCY ANAEMIA
     Dosage: 80 MG, ORAL
     Route: 048
     Dates: start: 20120405
  3. AXELER (OLMESARTAN MEDOXOMIL, AMLODIPINE BESILATE) (TABLET) (OLMESARTA [Suspect]
     Indication: HYPERTENSION
     Dosage: 40/10 MG, ORAL
     Route: 048
     Dates: start: 20100101, end: 20120401

REACTIONS (7)
  - DEHYDRATION [None]
  - HELICOBACTER GASTRITIS [None]
  - DIARRHOEA [None]
  - RENAL FAILURE ACUTE [None]
  - MICROCYTIC ANAEMIA [None]
  - COELIAC DISEASE [None]
  - VOMITING [None]
